FAERS Safety Report 11452960 (Version 3)
Quarter: 2015Q4

REPORT INFORMATION
  Report Type: Report from Study
  Country: JP (occurrence: JP)
  Receive Date: 20150903
  Receipt Date: 20151015
  Transmission Date: 20160304
  Serious: Yes (Other)
  Sender: FDA-Public Use
  Company Number: PHHY2013JP127938

PATIENT
  Age: 53 Year
  Sex: Female

DRUGS (25)
  1. S.M. [Concomitant]
     Indication: CONSTIPATION PROPHYLAXIS
     Dosage: 2600 MG, QD
     Route: 048
     Dates: start: 20131017, end: 20131107
  2. ROHYPNOL [Concomitant]
     Active Substance: FLUNITRAZEPAM
     Dosage: 2 MG, QD
     Route: 048
     Dates: start: 20131128
  3. RIBAVARIN [Concomitant]
     Active Substance: RIBAVIRIN
     Indication: PROPHYLAXIS
     Dosage: 750 MG, QD
     Route: 048
     Dates: start: 20131212, end: 20131215
  4. TAKA-DIASTASE [Concomitant]
     Active Substance: DIASTASE
     Indication: CONSTIPATION
     Dosage: 2600 MG, QD
     Route: 048
     Dates: start: 20131017, end: 20131107
  5. CLOZARIL [Suspect]
     Active Substance: CLOZAPINE
     Dosage: 450 MG, QD
     Route: 048
     Dates: start: 20131017, end: 20131107
  6. OLANZAPINE. [Suspect]
     Active Substance: OLANZAPINE
     Indication: SCHIZOPHRENIA
     Dosage: UNK
     Route: 065
  7. HALOPERIDOL. [Suspect]
     Active Substance: HALOPERIDOL
     Indication: SCHIZOPHRENIA
     Dosage: UNK
     Route: 065
  8. ARIPIPRAZOLE. [Suspect]
     Active Substance: ARIPIPRAZOLE
     Indication: PERSECUTORY DELUSION
  9. MAGMITT [Concomitant]
     Active Substance: MAGNESIUM OXIDE
     Indication: CONSTIPATION PROPHYLAXIS
     Dosage: 1320 MG, QD
     Route: 048
     Dates: start: 20131017, end: 20131107
  10. NELBON [Concomitant]
     Active Substance: NITRAZEPAM
     Indication: SCHIZOPHRENIA
     Dosage: 5 MG, QD
     Route: 048
     Dates: start: 20131111, end: 20131114
  11. MUCODYNE [Concomitant]
     Active Substance: CARBOCYSTEINE
     Indication: PROPHYLAXIS
     Dosage: 1500 MG, QD
     Route: 048
     Dates: start: 20131125, end: 20131208
  12. SENNARIDE [Concomitant]
     Active Substance: SENNOSIDES A AND B
     Indication: CONSTIPATION PROPHYLAXIS
     Dosage: 48 MG, QD
     Route: 048
     Dates: start: 20131017
  13. ROHYPNOL [Concomitant]
     Active Substance: FLUNITRAZEPAM
     Indication: SCHIZOPHRENIA
     Dosage: 1 MG, QD
     Route: 048
     Dates: start: 20131017, end: 20131107
  14. OLANZAPINE. [Suspect]
     Active Substance: OLANZAPINE
     Indication: PERSECUTORY DELUSION
  15. HALOPERIDOL. [Suspect]
     Active Substance: HALOPERIDOL
     Indication: HALLUCINATION, AUDITORY
  16. PALIPERIDONE [Suspect]
     Active Substance: PALIPERIDONE
     Indication: SCHIZOPHRENIA
     Dosage: 6 MG, QD
     Route: 065
  17. ARIPIPRAZOLE. [Suspect]
     Active Substance: ARIPIPRAZOLE
     Indication: HALLUCINATION, AUDITORY
  18. LONASEN [Concomitant]
     Active Substance: BLONANSERIN
     Indication: HALLUCINATION, AUDITORY
     Dosage: UNK
     Route: 048
  19. ARIPIPRAZOLE. [Suspect]
     Active Substance: ARIPIPRAZOLE
     Indication: SCHIZOPHRENIA
     Route: 065
  20. LIMAS [Concomitant]
     Active Substance: LITHIUM CARBONATE
     Indication: SCHIZOPHRENIA
     Dosage: 400 MG, QD
     Route: 048
     Dates: start: 20131017, end: 20131107
  21. OLANZAPINE. [Suspect]
     Active Substance: OLANZAPINE
     Indication: HALLUCINATION, AUDITORY
  22. PALIPERIDONE [Suspect]
     Active Substance: PALIPERIDONE
     Indication: HALLUCINATION, AUDITORY
  23. BLONANSERIN [Concomitant]
     Active Substance: BLONANSERIN
     Indication: SCHIZOPHRENIA
     Dosage: UNK
     Route: 065
  24. CLOZARIL [Suspect]
     Active Substance: CLOZAPINE
     Indication: SCHIZOPHRENIA
     Dosage: UNK
     Route: 048
     Dates: start: 20130716
  25. LENDORMIN [Concomitant]
     Active Substance: BROTIZOLAM
     Indication: SCHIZOPHRENIA
     Dosage: 0.25 MG, QD
     Route: 048
     Dates: start: 20131115

REACTIONS (13)
  - Musculoskeletal stiffness [Unknown]
  - Condition aggravated [Unknown]
  - Neutrophil percentage increased [Recovered/Resolved]
  - Dysphagia [Unknown]
  - Hallucination [Unknown]
  - Depressed level of consciousness [Unknown]
  - Blood pressure decreased [Unknown]
  - Pyrexia [Unknown]
  - Salivary hypersecretion [Unknown]
  - Persecutory delusion [Unknown]
  - Agranulocytosis [Recovering/Resolving]
  - White blood cell count increased [Recovered/Resolved]
  - White blood cell count increased [Recovered/Resolved]

NARRATIVE: CASE EVENT DATE: 20131111
